FAERS Safety Report 19244058 (Version 4)
Quarter: 2022Q1

REPORT INFORMATION
  Report Type: Spontaneous
  Country: JP (occurrence: JP)
  Receive Date: 20210512
  Receipt Date: 20220324
  Transmission Date: 20220423
  Serious: Yes (Death, Hospitalization, Other)
  Sender: FDA-Public Use
  Company Number: JP-CELLTRION INC.-2021JP006333

PATIENT

DRUGS (8)
  1. TRASTUZUMAB [Suspect]
     Active Substance: TRASTUZUMAB
     Indication: Breast cancer
     Dosage: UNK, EVERY 3 WEEKS
     Route: 065
     Dates: start: 20201223, end: 20210330
  2. PACLITAXEL [Suspect]
     Active Substance: PACLITAXEL
     Indication: Breast cancer
     Dosage: 100MG/16.7ML, 60, 3 TIMES/MONTH
     Route: 065
     Dates: start: 20201223, end: 20210406
  3. PERJETA [Suspect]
     Active Substance: PERTUZUMAB
     Indication: Breast cancer
     Dosage: UNK, EVERY 3 WEEKS
     Route: 065
     Dates: start: 20201223, end: 20210330
  4. LOXOPREN [Concomitant]
  5. REBAMIPIDE [Concomitant]
     Active Substance: REBAMIPIDE
  6. LANSOPRAZOLE [Concomitant]
     Active Substance: LANSOPRAZOLE
  7. TRAMADOL [Concomitant]
     Active Substance: TRAMADOL
  8. NOVAMIN [AMIKACIN SULFATE] [Concomitant]

REACTIONS (4)
  - Interstitial lung disease [Fatal]
  - Breast cancer stage IV [Fatal]
  - Disease progression [Fatal]
  - Metastases to liver [Fatal]

NARRATIVE: CASE EVENT DATE: 20210417
